FAERS Safety Report 19912719 (Version 1)
Quarter: 2021Q4

REPORT INFORMATION
  Report Type: Spontaneous
  Country: US (occurrence: US)
  Receive Date: 20211004
  Receipt Date: 20211004
  Transmission Date: 20220304
  Serious: Yes (unspecified)
  Sender: FDA-Public Use
  Company Number: None

PATIENT
  Age: 71 Year
  Sex: Male
  Weight: 86.85 kg

DRUGS (20)
  1. REGEN-COV [Suspect]
     Active Substance: CASIRIVIMAB\IMDEVIMAB
     Indication: COVID-19
     Route: 042
     Dates: start: 20211001, end: 20211001
  2. C-PAP [Concomitant]
  3. CITALOPRAM [Concomitant]
     Active Substance: CITALOPRAM HYDROBROMIDE
  4. GABAPENTIN [Concomitant]
     Active Substance: GABAPENTIN
  5. PROPRANOLOL [Concomitant]
     Active Substance: PROPRANOLOL HYDROCHLORIDE
  6. ATORVASTATIN [Concomitant]
     Active Substance: ATORVASTATIN
  7. FINASTERIDE [Concomitant]
     Active Substance: FINASTERIDE
  8. LISINOPRIL [Concomitant]
     Active Substance: LISINOPRIL
  9. MELOXICAM [Concomitant]
     Active Substance: MELOXICAM
  10. METFORMIN [Concomitant]
     Active Substance: METFORMIN HYDROCHLORIDE
  11. TYLENOL [Concomitant]
     Active Substance: ACETAMINOPHEN
  12. VITAMIN B COMPLEX [Concomitant]
     Active Substance: CYANOCOBALAMIN\DEXPANTHENOL\NIACINAMIDE\PYRIDOXINE HYDROCHLORIDE\RIBOFLAVIN 5^-PHOSPHATE SODIUM\THIA
  13. VITAMIN D [Concomitant]
     Active Substance: VITAMIN D NOS
  14. PROSTRATE HEALTH [Concomitant]
  15. CHONDROITIN SULFATE (BOVINE)\GLUCOSAMINE HYDROCHLORIDE [Concomitant]
     Active Substance: CHONDROITIN SULFATE (BOVINE)\GLUCOSAMINE HYDROCHLORIDE
  16. MAGNESIUM [Concomitant]
     Active Substance: MAGNESIUM
  17. MULTI VITAMIN WITHOUT IRON [Concomitant]
  18. FISH OIL [Concomitant]
     Active Substance: FISH OIL
  19. HIGH ACTIVE TART CHERRY CAPSULE [Concomitant]
  20. PROBIOTICS NOS [Concomitant]
     Active Substance: PROBIOTICS NOS

REACTIONS (6)
  - Tremor [None]
  - Confusional state [None]
  - Vomiting [None]
  - Urinary incontinence [None]
  - Muscle rigidity [None]
  - Oxygen saturation decreased [None]

NARRATIVE: CASE EVENT DATE: 20211001
